FAERS Safety Report 4621634-5 (Version None)
Quarter: 2005Q1

REPORT INFORMATION
  Report Type: 
  Country: None (occurrence: None)
  Receive Date: 20050328
  Receipt Date: 20050321
  Transmission Date: 20050727
  Serious: Yes (Congenital Anomaly, Other)
  Sender: FDA-Public Use
  Company Number: 139846USA

PATIENT
  Age: 0 Day
  Weight: 1.134 kg

DRUGS (9)
  1. COPAXONE [Suspect]
     Indication: MULTIPLE SCLEROSIS
     Dates: start: 20040527, end: 20040819
  2. CITRACAL [Concomitant]
  3. ABILIFY [Concomitant]
  4. ZYPREXA [Concomitant]
  5. BACLOFEN [Concomitant]
  6. DITROPAN [Concomitant]
  7. DEPAKOTE [Concomitant]
  8. CLARITIN [Concomitant]
  9. SENNA [Concomitant]

REACTIONS (6)
  - CONGENITAL ANOMALY [None]
  - DRUG EXPOSURE DURING PREGNANCY [None]
  - LUNG DISORDER [None]
  - MATERNAL DRUGS AFFECTING FOETUS [None]
  - PREMATURE BABY [None]
  - TALIPES [None]
